FAERS Safety Report 7682231-0 (Version None)
Quarter: 2011Q3

REPORT INFORMATION
  Report Type: 
  Country: None (occurrence: None)
  Receive Date: 20110815
  Receipt Date: 20110811
  Transmission Date: 20111222
  Serious: No
  Sender: FDA-Public Use
  Company Number: US-PFIZER INC-2011185691

PATIENT
  Sex: Male
  Weight: 77 kg

DRUGS (5)
  1. GABAPENTIN [Suspect]
     Indication: NEURALGIA
     Dosage: UNK
     Dates: end: 20100101
  2. GABAPENTIN [Suspect]
     Dosage: UNK
     Dates: start: 20100101
  3. DIOVAN [Concomitant]
     Indication: HYPERTENSION
     Dosage: UNK
  4. COREG [Concomitant]
     Indication: HYPERTENSION
     Dosage: UNK
  5. GABAPENTIN [Suspect]
     Dosage: 400 MG, 3X/DAY
     Dates: start: 20100101, end: 20100101

REACTIONS (3)
  - RESTLESSNESS [None]
  - INSOMNIA [None]
  - DRUG EFFECT DECREASED [None]
